FAERS Safety Report 8385309-1 (Version None)
Quarter: 2012Q2

REPORT INFORMATION
  Report Type: 
  Country: None (occurrence: None)
  Receive Date: 20120525
  Receipt Date: 20120515
  Transmission Date: 20120825
  Serious: No
  Sender: FDA-Public Use
  Company Number: US-BIOGENIDEC-2012BI017324

PATIENT
  Age: 60 Year
  Sex: Male

DRUGS (3)
  1. BACLOFEN [Concomitant]
     Route: 042
  2. TYSABRI [Suspect]
     Indication: MULTIPLE SCLEROSIS
     Route: 042
     Dates: start: 20061228, end: 20080718
  3. TYSABRI [Suspect]
     Route: 042
     Dates: start: 20090807, end: 20120322

REACTIONS (1)
  - DEVICE RELATED INFECTION [None]
